FAERS Safety Report 6518396-3 (Version None)
Quarter: 2009Q4

REPORT INFORMATION
  Report Type: 
  Country: None (occurrence: None)
  Receive Date: 20091225
  Receipt Date: 20091214
  Transmission Date: 20100525
  Serious: Yes (Hospitalization)
  Sender: FDA-Public Use
  Company Number: PHHY2009GB56835

PATIENT
  Age: 30 Year
  Sex: Female

DRUGS (5)
  1. CARBAMAZEPINE [Suspect]
     Indication: PAIN
     Dosage: UNK
     Route: 048
     Dates: start: 20091105, end: 20091129
  2. CO-CODAMOL [Concomitant]
  3. DICLOFENAC [Concomitant]
  4. GABAPENTIN [Concomitant]
  5. ALBUTEROL [Concomitant]

REACTIONS (4)
  - EYE SWELLING [None]
  - GAMMA-GLUTAMYLTRANSFERASE INCREASED [None]
  - OEDEMA PERIPHERAL [None]
  - RASH GENERALISED [None]
